FAERS Safety Report 6324710-4 (Version None)
Quarter: 2009Q3

REPORT INFORMATION
  Report Type: 
  Country: None (occurrence: None)
  Receive Date: 20090824
  Receipt Date: 20090506
  Transmission Date: 20100115
  Serious: No
  Sender: FDA-Public Use
  Company Number: US-ABBOTT-09P-163-0571879-00

PATIENT
  Sex: Male
  Weight: 80.812 kg

DRUGS (15)
  1. NIASPAN [Suspect]
     Indication: CORONARY ARTERY OCCLUSION
     Dates: start: 20090401
  2. ASPIRIN [Concomitant]
     Indication: DRUG USE FOR UNKNOWN INDICATION
  3. PLAVIX [Concomitant]
     Indication: CORONARY ARTERY DISEASE
     Dates: start: 20090301
  4. BENICAR [Concomitant]
     Indication: BLOOD PRESSURE
     Route: 048
     Dates: end: 20090501
  5. EXFORGE [Concomitant]
     Indication: DRUG USE FOR UNKNOWN INDICATION
     Dates: start: 20090502
  6. GINGER [Concomitant]
     Indication: PROSTATIC DISORDER
     Route: 048
  7. SAL PALMETTO [Concomitant]
     Indication: PROSTATIC DISORDER
  8. COQ10 [Concomitant]
     Indication: PROSTATIC DISORDER
  9. L-CARNITINE [Concomitant]
     Indication: DRUG USE FOR UNKNOWN INDICATION
     Route: 048
  10. SELENIUM [Concomitant]
     Indication: DRUG USE FOR UNKNOWN INDICATION
  11. ZINC [Concomitant]
     Indication: DRUG USE FOR UNKNOWN INDICATION
  12. LICOPENE [Concomitant]
     Indication: DRUG USE FOR UNKNOWN INDICATION
  13. MAGNESIUM [Concomitant]
     Indication: DRUG USE FOR UNKNOWN INDICATION
  14. VINEX [Concomitant]
     Indication: DRUG USE FOR UNKNOWN INDICATION
  15. PROSTAMIDE [Concomitant]
     Indication: DRUG USE FOR UNKNOWN INDICATION
     Route: 048

REACTIONS (3)
  - DIZZINESS [None]
  - FLUSHING [None]
  - NAUSEA [None]
